FAERS Safety Report 13706073 (Version 1)
Quarter: 2017Q2

REPORT INFORMATION
  Report Type: Report from Study
  Country: IT (occurrence: IT)
  Receive Date: 20170630
  Receipt Date: 20170630
  Transmission Date: 20170830
  Serious: Yes (Death)
  Sender: FDA-Public Use
  Company Number: IT-TEVA-781248ROM

PATIENT
  Age: 64 Year
  Sex: Male

DRUGS (1)
  1. FENTANYL. [Suspect]
     Active Substance: FENTANYL
     Indication: SUICIDE ATTEMPT
     Dosage: ONE 100ML VIAL AND ANOTHER VIAL WITH RESIDUAL 35ML SOLUTION
     Route: 041

REACTIONS (7)
  - Overdose [Fatal]
  - Toxicity to various agents [Fatal]
  - Product use in unapproved indication [Unknown]
  - Pulmonary oedema [Fatal]
  - Brain oedema [Fatal]
  - Completed suicide [Fatal]
  - Visceral congestion [Fatal]
